FAERS Safety Report 5313770-5 (Version None)
Quarter: 2007Q2

REPORT INFORMATION
  Report Type: 
  Country: None (occurrence: None)
  Receive Date: 20070426
  Receipt Date: 20070202
  Transmission Date: 20071010
  Serious: Yes (Hospitalization)
  Sender: FDA-Public Use
  Company Number: 2007-00157

PATIENT
  Age: 74 Year
  Sex: Male
  Weight: 71 kg

DRUGS (2)
  1. VELCADE [Suspect]
     Indication: MYELODYSPLASTIC SYNDROME
     Dosage: 1.78 MG, INTRAVENOUS
     Route: 042
     Dates: start: 20061229, end: 20070109
  2. CYTARABINE [Suspect]
     Indication: MYELODYSPLASTIC SYNDROME
     Dosage: 17.80 MG, INTRAVENOUS
     Route: 042
     Dates: start: 20061229, end: 20070111

REACTIONS (4)
  - DYSURIA [None]
  - ESCHERICHIA INFECTION [None]
  - HYDROCELE [None]
  - PYREXIA [None]
